FAERS Safety Report 11891622 (Version 1)
Quarter: 2016Q1

REPORT INFORMATION
  Report Type: Spontaneous
  Country: US (occurrence: US)
  Receive Date: 20160106
  Receipt Date: 20160106
  Transmission Date: 20160526
  Serious: Yes (Other)
  Sender: FDA-Public Use
  Company Number: US-AUROBINDO-AUR-APL-2015-11377

PATIENT
  Age: 88 Year
  Sex: Female

DRUGS (7)
  1. RIVAROXABAN [Interacting]
     Active Substance: RIVAROXABAN
     Indication: CEREBROVASCULAR ACCIDENT
  2. DABIGATRAN ETEXILATE [Interacting]
     Active Substance: DABIGATRAN ETEXILATE
     Indication: CEREBROVASCULAR ACCIDENT
     Dosage: 75 MG, TWO TIMES A DAY
     Route: 065
  3. DABIGATRAN ETEXILATE [Interacting]
     Active Substance: DABIGATRAN ETEXILATE
     Indication: ATRIAL FIBRILLATION
     Dosage: 150 MG, TWO TIMES A DAY
     Route: 048
  4. RIVAROXABAN [Interacting]
     Active Substance: RIVAROXABAN
     Indication: ATRIAL FIBRILLATION
     Dosage: 20 MG, DAILY
  5. MELOXICAM 15MG [Suspect]
     Active Substance: MELOXICAM
     Indication: PRODUCT USED FOR UNKNOWN INDICATION
     Dosage: 15 MG, UNK
     Route: 065
  6. ASPIRIN. [Interacting]
     Active Substance: ASPIRIN
     Indication: ANTICOAGULANT THERAPY
     Dosage: 81 MG, UNK
     Route: 065
  7. ASPIRIN. [Interacting]
     Active Substance: ASPIRIN
     Dosage: 81?325MG
     Route: 065

REACTIONS (2)
  - Pericardial haemorrhage [Unknown]
  - Drug interaction [Unknown]
